FAERS Safety Report 11059833 (Version 1)
Quarter: 2015Q2

REPORT INFORMATION
  Report Type: Spontaneous
  Country: US (occurrence: US)
  Receive Date: 20150423
  Receipt Date: 20150423
  Transmission Date: 20150821
  Serious: Yes (Hospitalization)
  Sender: FDA-Public Use
  Company Number: US-TEVA-557498USA

PATIENT
  Age: 6 Decade
  Sex: Male

DRUGS (2)
  1. CAPECITABINE. [Suspect]
     Active Substance: CAPECITABINE
     Indication: ADENOCARCINOMA PANCREAS
     Dosage: MONDAY-FRIDAY ALONG WITH RADIATION THERAPY FROM MAR-MAY 2013.
     Route: 048
     Dates: start: 201303, end: 201307
  2. ERLOTINIB [Suspect]
     Active Substance: ERLOTINIB
     Indication: ADENOCARCINOMA PANCREAS
     Dosage: GIVEN ALONG WITH CAPECITABINE THROUGH THE MONTH OF JULY 2013.
     Route: 048
     Dates: start: 201306, end: 201307

REACTIONS (2)
  - Gastroenteritis radiation [Recovered/Resolved]
  - Anaemia [Unknown]
